FAERS Safety Report 7848631-0 (Version None)
Quarter: 2011Q4

REPORT INFORMATION
  Report Type: 
  Country: None (occurrence: None)
  Receive Date: 20111026
  Receipt Date: 20111018
  Transmission Date: 20120403
  Serious: Yes (Hospitalization)
  Sender: FDA-Public Use
  Company Number: US-BIOGENIDEC-2011BI037269

PATIENT
  Age: 62 Year
  Sex: Female

DRUGS (2)
  1. TYSABRI [Suspect]
     Indication: MULTIPLE SCLEROSIS
     Route: 042
     Dates: start: 20110321, end: 20110822
  2. TYSABRI [Suspect]
     Route: 042
     Dates: start: 20061211, end: 20100426

REACTIONS (2)
  - FALL [None]
  - ANKLE FRACTURE [None]
